FAERS Safety Report 9411288 (Version 1)
Quarter: 2013Q3

REPORT INFORMATION
  Report Type: Spontaneous
  Country: US (occurrence: US)
  Receive Date: 20130722
  Receipt Date: 20130722
  Transmission Date: 20140515
  Serious: Yes (Hospitalization)
  Sender: FDA-Public Use
  Company Number: US-BIOGENIDEC-2013BI064542

PATIENT
  Sex: Female

DRUGS (1)
  1. TECFIDERA [Suspect]
     Indication: MULTIPLE SCLEROSIS
     Route: 048
     Dates: start: 2013

REACTIONS (12)
  - Lethargy [Unknown]
  - Confusional state [Unknown]
  - Dysarthria [Unknown]
  - Dysstasia [Unknown]
  - Transient ischaemic attack [Unknown]
  - Multiple sclerosis relapse [Unknown]
  - Multiple sclerosis [Unknown]
  - Dehydration [Unknown]
  - Electrolyte imbalance [Unknown]
  - Vomiting [Unknown]
  - Fatigue [Unknown]
  - Flushing [Recovered/Resolved]
